FAERS Safety Report 17413887 (Version 4)
Quarter: 2020Q3

REPORT INFORMATION
  Report Type: Report from Study
  Country: CA (occurrence: CA)
  Receive Date: 20200213
  Receipt Date: 20200824
  Transmission Date: 20201102
  Serious: Yes (Hospitalization, Other)
  Sender: FDA-Public Use
  Company Number: CA-JNJFOC-20200106389

PATIENT
  Age: 71 Year
  Sex: Male
  Weight: 81.3 kg

DRUGS (2)
  1. REMICADE [Suspect]
     Active Substance: INFLIXIMAB
     Indication: CROHN^S DISEASE
     Route: 042
     Dates: start: 20190312
  2. REMICADE [Suspect]
     Active Substance: INFLIXIMAB
     Route: 042

REACTIONS (3)
  - Bile duct cancer [Unknown]
  - Escherichia infection [Unknown]
  - Incision site abscess [Not Recovered/Not Resolved]

NARRATIVE: CASE EVENT DATE: 202002
